FAERS Safety Report 8388948-7 (Version None)
Quarter: 2012Q2

REPORT INFORMATION
  Report Type: 
  Country: None (occurrence: None)
  Receive Date: 20120528
  Receipt Date: 20120518
  Transmission Date: 20120825
  Serious: No
  Sender: FDA-Public Use
  Company Number: US-BIOGENIDEC-2012BI017688

PATIENT
  Age: 34 Year
  Sex: Female

DRUGS (3)
  1. NAPROXEN (ALEVE) [Concomitant]
     Indication: PREMEDICATION
     Dates: end: 20110101
  2. AVONEX [Suspect]
     Route: 030
     Dates: start: 20070201, end: 20110101
  3. AVONEX [Suspect]
     Indication: MULTIPLE SCLEROSIS
     Route: 030
     Dates: start: 20020202, end: 20050101

REACTIONS (3)
  - INFLUENZA LIKE ILLNESS [None]
  - ANXIETY [None]
  - PAIN [None]
